FAERS Safety Report 7730185-0 (Version None)
Quarter: 2011Q3

REPORT INFORMATION
  Report Type: 
  Country: None (occurrence: None)
  Receive Date: 20110906
  Receipt Date: 20110830
  Transmission Date: 20111222
  Serious: Yes (Life-Threatening, Other)
  Sender: FDA-Public Use
  Company Number: PHEH2011US02981

PATIENT
  Sex: Female

DRUGS (24)
  1. DIOVAN [Suspect]
     Dosage: 1 DF, QD (80 MG)
  2. ADVERLOG [Suspect]
  3. LORTAB [Concomitant]
  4. HEMALOG [Concomitant]
  5. ATIBAN [Concomitant]
  6. AMARYL [Concomitant]
  7. ALLEGRA [Concomitant]
  8. SYMBICORT [Concomitant]
  9. TESTSALON [Concomitant]
  10. PRILOSEC [Concomitant]
  11. COREG [Concomitant]
  12. SPIRIBA [Concomitant]
  13. PLISVAX [Concomitant]
  14. ZOFRAN [Concomitant]
  15. LIUTERO [Concomitant]
  16. NIRTO [Concomitant]
     Indication: CHEST PAIN
  17. LIECSIE [Concomitant]
     Dosage: 80 MG, UNK
  18. COMVIBENT [Concomitant]
  19. ASPIRIN [Concomitant]
     Dosage: 81 MG, UNK
  20. PIRAPEX [Concomitant]
  21. IPRATROPIUM BROMIDE [Concomitant]
  22. ZANTAZ [Concomitant]
  23. ZETIA [Concomitant]
  24. KUDOR [Concomitant]

REACTIONS (6)
  - PHARYNGEAL OEDEMA [None]
  - FEELING ABNORMAL [None]
  - TINNITUS [None]
  - ARTHRALGIA [None]
  - SWOLLEN TONGUE [None]
  - BONE PAIN [None]
